FAERS Safety Report 9053699 (Version 1)
Quarter: 2013Q1

REPORT INFORMATION
  Report Type: Spontaneous
  Country: US (occurrence: None)
  Receive Date: 20130201
  Receipt Date: 20130201
  Transmission Date: 20140127
  Serious: Yes (Hospitalization)
  Sender: FDA-Public Use
  Company Number: None

PATIENT
  Age: 25 Year
  Sex: Female
  Weight: 66 kg

DRUGS (2)
  1. CLOPIDOGREL [Suspect]
     Indication: CEREBROVASCULAR ACCIDENT
     Route: 048
     Dates: start: 20130124, end: 20130126
  2. CLOPIDOGREL [Suspect]
     Indication: ATRIAL SEPTAL DEFECT
     Route: 048
     Dates: start: 20130124, end: 20130126

REACTIONS (1)
  - Urticaria [None]
